FAERS Safety Report 13100579 (Version 2)
Quarter: 2017Q2

REPORT INFORMATION
  Report Type: Spontaneous
  Country: US (occurrence: US)
  Receive Date: 20170110
  Receipt Date: 20170516
  Transmission Date: 20170830
  Serious: Yes (Other)
  Sender: FDA-Public Use
  Company Number: US-BAYER-2017-002036

PATIENT
  Sex: Male

DRUGS (2)
  1. KOVALTRY [Suspect]
     Active Substance: ANTIHEMOPHILIC FACTOR, HUMAN RECOMBINANT
     Indication: HAEMOPHILIA
     Dosage: KOVALTRY INJECTION TO TREAT THE BLEED
     Dates: start: 2016, end: 2016
  2. KOVALTRY [Suspect]
     Active Substance: ANTIHEMOPHILIC FACTOR, HUMAN RECOMBINANT
     Indication: HAEMOPHILIA
     Dosage: KOVALTRY INJECTIONS 2 TIMES WEEKLY AS PROPHYLAXIS
     Dates: start: 201603

REACTIONS (1)
  - Haemorrhage [None]
